FAERS Safety Report 8196302-6 (Version None)
Quarter: 2012Q1

REPORT INFORMATION
  Report Type: 
  Country: None (occurrence: None)
  Receive Date: 20120309
  Receipt Date: 20120305
  Transmission Date: 20120608
  Serious: No
  Sender: FDA-Public Use
  Company Number: US-PFIZER INC-2012026134

PATIENT
  Sex: Male

DRUGS (5)
  1. EFFEXOR XR [Suspect]
     Dosage: 300 MG, 1X/DAY
  2. LAMICTAL [Concomitant]
     Dosage: 200 MG, 1X/DAY
  3. TRAZODONE [Concomitant]
     Dosage: 100 MG, 1X/DAY
  4. EFFEXOR XR [Suspect]
     Dosage: 150 MG, 2X/DAY
  5. CLONAZEPAM [Concomitant]
     Dosage: 2 MG, 2X/DAY

REACTIONS (1)
  - DEPRESSION [None]
